FAERS Safety Report 17169214 (Version 1)
Quarter: 2019Q4

REPORT INFORMATION
  Report Type: Spontaneous
  Country: US (occurrence: US)
  Receive Date: 20191125
  Receipt Date: 20191125
  Transmission Date: 20200122
  Serious: Yes (Hospitalization)
  Sender: FDA-Public Use
  Company Number: None

PATIENT
  Age: 53 Year
  Sex: Female
  Weight: 73.8 kg

DRUGS (1)
  1. ASPIRIN (27223) [Suspect]
     Active Substance: ASPIRIN
     Dates: end: 20191120

REACTIONS (6)
  - Fall [None]
  - Neck pain [None]
  - Muscular weakness [None]
  - Spinal deformity [None]
  - Pain [None]
  - Dislocation of vertebra [None]

NARRATIVE: CASE EVENT DATE: 20191120
